FAERS Safety Report 8366027-2 (Version None)
Quarter: 2012Q2

REPORT INFORMATION
  Report Type: 
  Country: None (occurrence: None)
  Receive Date: 20120517
  Receipt Date: 20120511
  Transmission Date: 20120825
  Serious: No
  Sender: FDA-Public Use
  Company Number: US-PFIZER INC-2012115628

PATIENT
  Sex: Male
  Weight: 68 kg

DRUGS (7)
  1. AMLODIPINE [Concomitant]
     Dosage: UNK
  2. LOVASTATIN [Concomitant]
     Dosage: UNK
  3. SUTENT [Suspect]
     Indication: METASTATIC RENAL CELL CARCINOMA
     Dosage: 50 MG, 24/42 DAY CYCLE
     Dates: start: 20120418
  4. METOPROLOL [Concomitant]
     Dosage: UNK
  5. POTASSIUM [Concomitant]
     Dosage: UNK
  6. BENICAR [Concomitant]
     Dosage: UNK
  7. TAMSULOSIN HYDROCHLORIDE [Concomitant]
     Dosage: UNK

REACTIONS (8)
  - FATIGUE [None]
  - DECREASED APPETITE [None]
  - AGITATION [None]
  - WEIGHT DECREASED [None]
  - CHANGE OF BOWEL HABIT [None]
  - DRY MOUTH [None]
  - DEPRESSED MOOD [None]
  - MASTICATION DISORDER [None]
